FAERS Safety Report 17650333 (Version 1)
Quarter: 2020Q2

REPORT INFORMATION
  Report Type: Spontaneous
  Country: US (occurrence: US)
  Receive Date: 20200409
  Receipt Date: 20200409
  Transmission Date: 20200713
  Serious: No
  Sender: FDA-Public Use
  Company Number: US-JNJFOC-20200342398

PATIENT
  Age: 65 Year
  Sex: Female

DRUGS (2)
  1. WOMENS ROGAINE UNSCENTED [Suspect]
     Active Substance: MINOXIDIL
     Indication: ALOPECIA
     Dosage: DOSE:2 CAP FULS?THE PRODUCT WAS LAST ADMINISTERED ON 25/MAR/2020.
     Route: 061
     Dates: start: 20200312
  2. WOMENS ROGAINE UNSCENTED [Suspect]
     Active Substance: MINOXIDIL
     Indication: ANDROGENETIC ALOPECIA

REACTIONS (2)
  - Overdose [Unknown]
  - Alopecia [Unknown]

NARRATIVE: CASE EVENT DATE: 202003
